FAERS Safety Report 9025407 (Version 1)
Quarter: 2013Q1

REPORT INFORMATION
  Report Type: Spontaneous
  Country: US (occurrence: US)
  Receive Date: 20130122
  Receipt Date: 20130122
  Transmission Date: 20140127
  Serious: No
  Sender: FDA-Public Use
  Company Number: US-OPTIMER PHARMACEUTICALS, INC.-20120123

PATIENT
  Sex: Female

DRUGS (1)
  1. DIFICID [Suspect]
     Indication: CLOSTRIDIAL INFECTION
     Dosage: 200 MG, UNK
     Route: 048
     Dates: start: 20120813, end: 20120820

REACTIONS (1)
  - Lip swelling [Unknown]
